FAERS Safety Report 7093880-5 (Version None)
Quarter: 2010Q4

REPORT INFORMATION
  Report Type: 
  Country: None (occurrence: None)
  Receive Date: 20101110
  Receipt Date: 20101103
  Transmission Date: 20110411
  Serious: Yes (Death, Hospitalization)
  Sender: FDA-Public Use
  Company Number: PHHY2010US71096

PATIENT
  Age: 89 Year
  Sex: Male
  Weight: 63.9 kg

DRUGS (14)
  1. ZOMETA [Suspect]
     Indication: PROSTATE CANCER METASTATIC
     Dosage: 4 MG
     Route: 042
     Dates: start: 20090914, end: 20090914
  2. ZOMETA [Suspect]
     Dosage: 3 MG
     Dates: start: 20090914
  3. CARVEDILOL [Concomitant]
     Dosage: 6.25 MG
     Route: 048
  4. PLAVIX [Concomitant]
     Dosage: 75 MG, QD
     Route: 048
  5. ASPIRIN [Concomitant]
     Dosage: 81 MG, QD
  6. SYNTHROID [Concomitant]
     Dosage: 50 MG, QD
  7. LASIX [Concomitant]
     Dosage: 40 MG, QD
  8. CASODEX [Concomitant]
     Dosage: 50 MG, QD
  9. LUPRON [Concomitant]
     Indication: PROSTATE CANCER
     Dosage: 30 MG,
     Dates: end: 20091202
  10. AMIODARONE [Concomitant]
     Dosage: 200 MG, BID
  11. DIGOXIN [Concomitant]
     Dosage: 0.125 MG, QD
  12. ALDACTONE [Concomitant]
     Dosage: 25 MG, QD
  13. BETA BLOCKING AGENTS [Concomitant]
  14. CALCIUM CHANNEL BLOCKERS [Concomitant]

REACTIONS (6)
  - ANAEMIA [None]
  - CARDIAC FAILURE CONGESTIVE [None]
  - DEATH [None]
  - GASTROINTESTINAL ANGIODYSPLASIA HAEMORRHAGIC [None]
  - GASTROINTESTINAL HAEMORRHAGE [None]
  - RECTAL HAEMORRHAGE [None]
